FAERS Safety Report 7302527-1 (Version None)
Quarter: 2011Q1

REPORT INFORMATION
  Report Type: 
  Country: None (occurrence: None)
  Receive Date: 20110218
  Receipt Date: 20110215
  Transmission Date: 20110831
  Serious: Yes (Other)
  Sender: FDA-Public Use
  Company Number: US-PFIZER INC-2011034016

PATIENT
  Sex: Female
  Weight: 78.46 kg

DRUGS (8)
  1. ARICEPT [Concomitant]
     Indication: DEMENTIA
     Dosage: 10 MG, 1X/DAY
  2. ACETYLSALICYLIC ACID [Concomitant]
     Indication: CARDIAC DISORDER
     Dosage: 81 MG, 1X/DAY
  3. LYRICA [Suspect]
     Indication: FIBROMYALGIA
     Dosage: 75 MG, 2X/DAY
     Dates: start: 20101201, end: 20101201
  4. INDOMETHACIN [Concomitant]
     Indication: ANKYLOSING SPONDYLITIS
     Dosage: 50 MG, 3X/DAY
  5. METOPROLOL [Concomitant]
     Indication: HYPERTENSION
     Dosage: 50 MG, 2X/DAY
  6. LYRICA [Suspect]
     Dosage: 75 MG, 3X/DAY
     Dates: start: 20101201
  7. ULTRAM ER [Concomitant]
     Indication: PAIN
     Dosage: 100 MG, 3X/DAY
  8. LASIX [Concomitant]
     Indication: OEDEMA DUE TO CARDIAC DISEASE
     Dosage: 40 MG, 1X/DAY

REACTIONS (2)
  - WEIGHT INCREASED [None]
  - WEIGHT DECREASED [None]
